FAERS Safety Report 9536117 (Version 1)
Quarter: 2013Q2

REPORT INFORMATION
  Report Type: Spontaneous
  Country: US (occurrence: None)
  Receive Date: 20130507
  Receipt Date: 20130507
  Transmission Date: 20140414
  Serious: No
  Sender: FDA-Public Use
  Company Number: PHEH2013US001054

PATIENT
  Age: 51 Year
  Sex: Female

DRUGS (1)
  1. AFINITOR (RAD) TABLET, 10MG [Suspect]
     Indication: BREAST CANCER
     Route: 048
     Dates: start: 20121213, end: 20130103

REACTIONS (2)
  - Urticaria [None]
  - Rash [None]
